FAERS Safety Report 12193483 (Version 1)
Quarter: 2016Q1

REPORT INFORMATION
  Report Type: Report from Study
  Country: CO (occurrence: CO)
  Receive Date: 20160320
  Receipt Date: 20160320
  Transmission Date: 20160526
  Serious: Yes (Disabling, Other)
  Sender: FDA-Public Use
  Company Number: CO-REGENERON PHARMACEUTICALS, INC.-2014-20540

PATIENT

DRUGS (1)
  1. EYLEA [Suspect]
     Active Substance: AFLIBERCEPT
     Indication: NEOVASCULAR AGE-RELATED MACULAR DEGENERATION
     Dosage: 1 DF, ONCE
     Dates: start: 20140527, end: 20140527

REACTIONS (3)
  - Eye infection [Not Recovered/Not Resolved]
  - Blindness [Not Recovered/Not Resolved]
  - Lens disorder [Not Recovered/Not Resolved]

NARRATIVE: CASE EVENT DATE: 20140527
